FAERS Safety Report 6085859-7 (Version None)
Quarter: 2009Q1

REPORT INFORMATION
  Report Type: 
  Country: None (occurrence: None)
  Receive Date: 20090220
  Receipt Date: 20090212
  Transmission Date: 20090719
  Serious: Yes (Other)
  Sender: FDA-Public Use
  Company Number: B0558963A

PATIENT
  Age: 46 Year
  Sex: Female

DRUGS (6)
  1. BUPROPION HCL [Suspect]
     Indication: SMOKING CESSATION THERAPY
     Dosage: 300MG PER DAY
     Route: 048
     Dates: start: 20081203, end: 20081207
  2. LANSOPRAZOLE [Concomitant]
     Route: 048
     Dates: start: 20081001
  3. MEBEVERINE [Concomitant]
     Route: 048
     Dates: start: 20081001
  4. CETIRIZINE [Concomitant]
     Indication: RASH
     Route: 048
     Dates: start: 20080501
  5. MONTELUKAST SODIUM [Concomitant]
     Indication: ASTHMA
     Route: 048
     Dates: start: 20070101
  6. SALBUTAMOL [Concomitant]
     Indication: ASTHMA
     Route: 055
     Dates: start: 20070101

REACTIONS (3)
  - ABDOMINAL PAIN UPPER [None]
  - GASTROENTERITIS [None]
  - RASH [None]
